FAERS Safety Report 6135422-4 (Version None)
Quarter: 2009Q1

REPORT INFORMATION
  Report Type: 
  Country: None (occurrence: None)
  Receive Date: 20090327
  Receipt Date: 20090323
  Transmission Date: 20090719
  Serious: Yes (Death, Life-Threatening, Hospitalization)
  Sender: FDA-Public Use
  Company Number: IN-ELI_LILLY_AND_COMPANY-IN200903005504

PATIENT
  Age: 85 Year
  Sex: Male

DRUGS (8)
  1. XIGRIS [Suspect]
     Indication: MENINGOCOCCAL SEPSIS
     Dosage: 8.5 ML/HR
     Route: 042
     Dates: start: 20090322
  2. DEXTROSE 5% AND SODIUM CHLORIDE 0.45% IN PLASTIC CONTAINER [Concomitant]
     Dosage: 20 ML, PER HOUR
     Route: 065
  3. SODIUM CHLORIDE [Concomitant]
     Dosage: 20 ML, PER HOUR
     Route: 065
  4. PIPERACILLIN [Concomitant]
     Dosage: 4.1 ML, PER HOUR
     Route: 065
  5. TAZOBACTAM [Concomitant]
     Dosage: 4.1 ML, PER HOUR
     Route: 065
  6. NORADRENALIN                       /00127501/ [Concomitant]
     Dosage: UNK, UNKNOWN
     Route: 065
  7. DOPAMINE HCL [Concomitant]
     Dosage: UNK, UNKNOWN
     Route: 065
  8. DOBUTAMINE HCL [Concomitant]
     Dosage: UNK, UNKNOWN
     Route: 065

REACTIONS (3)
  - CARDIAC ARREST [None]
  - MENINGOCOCCAL SEPSIS [None]
  - SEPTIC SHOCK [None]
